FAERS Safety Report 16158213 (Version 1)
Quarter: 2019Q2

REPORT INFORMATION
  Report Type: Spontaneous
  Country: US (occurrence: US)
  Receive Date: 20190301
  Receipt Date: 20190301
  Transmission Date: 20190711
  Serious: Yes (Hospitalization)
  Sender: FDA-Public Use
  Company Number: None

PATIENT
  Age: 57 Year
  Sex: Female

DRUGS (15)
  1. LEXAPRO [Concomitant]
     Active Substance: ESCITALOPRAM OXALATE
  2. MELOXICAM. [Concomitant]
     Active Substance: MELOXICAM
  3. PRIMIDONE. [Concomitant]
     Active Substance: PRIMIDONE
  4. HUMIRA [Suspect]
     Active Substance: ADALIMUMAB
     Indication: ANKYLOSING SPONDYLITIS
     Route: 058
     Dates: start: 201704
  5. LATUDA [Concomitant]
     Active Substance: LURASIDONE HYDROCHLORIDE
  6. DOXEPIN [Concomitant]
     Active Substance: DOXEPIN
  7. METOPROLOL TARTRATE. [Concomitant]
     Active Substance: METOPROLOL TARTRATE
  8. OMEPRAZOLE. [Concomitant]
     Active Substance: OMEPRAZOLE
  9. WELLBUTRIN [Concomitant]
     Active Substance: BUPROPION HYDROCHLORIDE
  10. AMITRIPTYLIN [Suspect]
     Active Substance: AMITRIPTYLINE
  11. GABAPENTIN. [Suspect]
     Active Substance: GABAPENTIN
  12. HYDOCCHLOROT [Concomitant]
  13. ARMODAFINIL. [Concomitant]
     Active Substance: ARMODAFINIL
  14. CYCLOBENZAPR [Concomitant]
     Active Substance: CYCLOBENZAPRINE
  15. LISINOPRIL. [Suspect]
     Active Substance: LISINOPRIL

REACTIONS (4)
  - Condition aggravated [None]
  - Fatigue [None]
  - Arthralgia [None]
  - Therapy cessation [None]
